FAERS Safety Report 6235511-X (Version None)
Quarter: 2009Q2

REPORT INFORMATION
  Report Type: 
  Country: None (occurrence: None)
  Receive Date: 20090618
  Receipt Date: 20080625
  Transmission Date: 20091009
  Serious: No
  Sender: FDA-Public Use
  Company Number: US-ASTRAZENECA-2008UW12795

PATIENT
  Age: 66 Year
  Sex: Female
  Weight: 57.6 kg

DRUGS (9)
  1. RHINOCORT [Suspect]
     Indication: HYPERSENSITIVITY
     Route: 045
  2. RHINOCORT [Suspect]
     Indication: SINUS POLYP
     Route: 045
  3. RHINOCORT [Suspect]
     Indication: VOCAL CORD POLYP
     Route: 045
  4. ADVAIR HFA [Concomitant]
  5. SPIRIVA [Concomitant]
  6. NEXIUM [Concomitant]
  7. MAXZIDE [Concomitant]
  8. ALLEGRA [Concomitant]
  9. SINGULAIR [Concomitant]

REACTIONS (1)
  - WEIGHT INCREASED [None]
